FAERS Safety Report 4696336-X (Version None)
Quarter: 2005Q2

REPORT INFORMATION
  Report Type: 
  Country: None (occurrence: None)
  Receive Date: 20050620
  Receipt Date: 20050608
  Transmission Date: 20051028
  Serious: Yes (Other)
  Sender: FDA-Public Use
  Company Number: 2005076922

PATIENT
  Age: 7 Year
  Sex: Male

DRUGS (3)
  1. GENOTROPIN [Suspect]
     Indication: BODY HEIGHT BELOW NORMAL
     Dosage: (1.2 MG, SIX DAYS PER WEEK)
     Dates: start: 20041101
  2. ALBUTEROL [Concomitant]
  3. SINGULAIR [Concomitant]

REACTIONS (2)
  - INGUINAL HERNIA [None]
  - PHARMACEUTICAL PRODUCT COMPLAINT [None]
